FAERS Safety Report 4945407-9 (Version None)
Quarter: 2006Q1

REPORT INFORMATION
  Report Type: 
  Country: None (occurrence: None)
  Receive Date: 20060315
  Receipt Date: 20060315
  Transmission Date: 20060701
  Serious: Yes (Other)
  Sender: FDA-Public Use
  Company Number: None

PATIENT
  Age: 37 Year
  Sex: Female
  Weight: 63.5036 kg

DRUGS (2)
  1. PAXIL [Suspect]
     Indication: STRESS
     Dosage: 25 MG DAILY
     Dates: start: 20051201
  2. PAXIL [Suspect]
     Indication: STRESS
     Dosage: 12.5 MG DAILY
     Dates: start: 20060301

REACTIONS (4)
  - DRUG DEPENDENCE [None]
  - DRUG WITHDRAWAL SYNDROME [None]
  - IATROGENIC INJURY [None]
  - PHARMACEUTICAL PRODUCT COMPLAINT [None]
